FAERS Safety Report 5181264-6 (Version None)
Quarter: 2006Q4

REPORT INFORMATION
  Report Type: 
  Country: None (occurrence: None)
  Receive Date: 20061220
  Receipt Date: 20051121
  Transmission Date: 20070319
  Serious: No
  Sender: FDA-Public Use
  Company Number: US-GLAXOSMITHKLINE-A0583193A

PATIENT
  Sex: Female

DRUGS (1)
  1. COMMIT [Suspect]
     Dosage: 2MG UNKNOWN

REACTIONS (5)
  - DRUG ABUSER [None]
  - GINGIVAL DISORDER [None]
  - GINGIVAL PAIN [None]
  - GINGIVITIS [None]
  - STOMATITIS [None]
